FAERS Safety Report 16296028 (Version 1)
Quarter: 2019Q2

REPORT INFORMATION
  Report Type: Report from Study
  Country: None (occurrence: US)
  Receive Date: 20190509
  Receipt Date: 20190509
  Transmission Date: 20190711
  Serious: Yes (Other)
  Sender: FDA-Public Use
  Company Number: US-ABBVIE-19S-163-2773990-00

PATIENT
  Age: 71 Year
  Sex: Female

DRUGS (1)
  1. CREON [Suspect]
     Active Substance: PANCRELIPASE AMYLASE\PANCRELIPASE LIPASE\PANCRELIPASE PROTEASE
     Indication: PRODUCT USED FOR UNKNOWN INDICATION
     Route: 048

REACTIONS (20)
  - Female sterilisation [Unknown]
  - Shoulder operation [Unknown]
  - Gout [Unknown]
  - Abnormal behaviour [Unknown]
  - Gastric operation [Unknown]
  - Eyelid operation [Unknown]
  - Anxiety [Unknown]
  - Joint arthroplasty [Unknown]
  - Lens capsulotomy [Unknown]
  - Depression [Unknown]
  - Blepharoplasty [Unknown]
  - Foot deformity [Unknown]
  - Type 2 diabetes mellitus [Unknown]
  - Chest pain [Unknown]
  - Obesity [Unknown]
  - Hyperlipidaemia [Unknown]
  - Hypothyroidism [Unknown]
  - Eyelid operation [Unknown]
  - Cataract [Unknown]
  - Gastric bypass [Unknown]

NARRATIVE: CASE EVENT DATE: 2005
